FAERS Safety Report 25789076 (Version 5)
Quarter: 2025Q4

REPORT INFORMATION
  Report Type: Spontaneous
  Country: JP (occurrence: JP)
  Receive Date: 20250911
  Receipt Date: 20251217
  Transmission Date: 20260117
  Serious: Yes (Hospitalization, Other)
  Sender: ROCHE
  Company Number: JP-CHUGAI-2025028506

PATIENT
  Age: 85 Year
  Sex: Male

DRUGS (3)
  1. PIASKY [Suspect]
     Active Substance: CROVALIMAB-AKKZ
     Indication: Paroxysmal nocturnal haemoglobinuria
     Dosage: 340 MILLIGRAM
  2. PIASKY [Suspect]
     Active Substance: CROVALIMAB-AKKZ
     Dosage: 340 MILLIGRAM
  3. PIASKY [Suspect]
     Active Substance: CROVALIMAB-AKKZ
     Dosage: 340 MILLIGRAM
     Route: 058

REACTIONS (6)
  - Sepsis [Recovered/Resolved]
  - Cardiac failure chronic [Recovered/Resolved]
  - Pneumonia klebsiella [Recovered/Resolved]
  - Vasculitic rash [Recovered/Resolved]
  - Off label use [Unknown]
  - Type III immune complex mediated reaction [Recovered/Resolved]

NARRATIVE: CASE EVENT DATE: 20250805
